FAERS Safety Report 9524410 (Version 1)
Quarter: 2013Q1

REPORT INFORMATION
  Report Type: Spontaneous
  Country: US (occurrence: None)
  Receive Date: 20130305
  Receipt Date: 20130305
  Transmission Date: 20140127
  Serious: Yes (Other)
  Sender: FDA-Public Use
  Company Number: 163-21880-12031518

PATIENT
  Age: 66 Year
  Sex: Male
  Weight: 63.5 kg

DRUGS (13)
  1. REVLIMID [Suspect]
     Indication: PLASMA CELL MYELOMA
     Dosage: 10 MG, Q 21 DAYS, PO
     Route: 048
     Dates: start: 20080101
  2. ALLOPURINOL (ALLOPURINOL) (UNKNOWN) [Concomitant]
  3. ASPIRIN (ACETYLSALICYLIC ACID) (UNKNOWN) (ACETYLSALICYLIC ACID) [Concomitant]
  4. CALCIUM (CALCIUM) (UNKNOWN) [Concomitant]
  5. ANTACID (ANTACIDS) (UNKNOWN) [Concomitant]
  6. CALCIUM +D (OS-CAL) (UNKNOWN) [Concomitant]
  7. FAMCICLOVIR (FAMCICLOVIR) (UNKNOWN) [Concomitant]
  8. FOLIC ACID (FOLIC ACID)  (UNKNOWN) [Concomitant]
  9. IRON [Concomitant]
  10. OMEPRAZOLE (OMEPRAZOLE) (UNKNOWN) [Concomitant]
  11. SENNA (SENNA) (UNKNOWN). [Concomitant]
  12. STOOL SOFTENER (DOCUSATE SODIUM) (UNKOWN) [Concomitant]
  13. VITAMIN D (ERGOCALCIFEROL) (UNKNOWN) [Concomitant]

REACTIONS (1)
  - Renal impairment [None]
